FAERS Safety Report 18759251 (Version 2)
Quarter: 2021Q1

REPORT INFORMATION
  Report Type: Spontaneous
  Country: US (occurrence: US)
  Receive Date: 20210120
  Receipt Date: 20210322
  Transmission Date: 20210419
  Serious: Yes (Hospitalization)
  Sender: FDA-Public Use
  Company Number: US-BIOGEN-2012BI006008

PATIENT
  Age: 58 Year
  Sex: Female

DRUGS (1)
  1. TYSABRI [Suspect]
     Active Substance: NATALIZUMAB
     Indication: MULTIPLE SCLEROSIS
     Route: 042
     Dates: start: 20091106, end: 20120202

REACTIONS (8)
  - White blood cell count increased [Unknown]
  - Gait inability [Recovered/Resolved]
  - Gastric cyst [Unknown]
  - Liver injury [Unknown]
  - Sepsis [Unknown]
  - Back pain [Recovered/Resolved]
  - Cyst [Unknown]
  - Meningitis [Recovered/Resolved]

NARRATIVE: CASE EVENT DATE: 2012
